FAERS Safety Report 18541809 (Version 2)
Quarter: 2020Q4

REPORT INFORMATION
  Report Type: Report from Study
  Country: US (occurrence: US)
  Receive Date: 20201124
  Receipt Date: 20201226
  Transmission Date: 20210114
  Serious: Yes (Hospitalization, Other)
  Sender: FDA-Public Use
  Company Number: US-TAKEDA-US202030171

PATIENT
  Age: 52 Year
  Sex: Female
  Weight: 86.17 kg

DRUGS (12)
  1. TEDUGLUTIDE [Suspect]
     Active Substance: TEDUGLUTIDE
     Indication: SHORT-BOWEL SYNDROME
     Dosage: 3.3 MILLIGRAM, 1X/DAY:QD
     Route: 058
     Dates: start: 20200817
  2. TEDUGLUTIDE [Suspect]
     Active Substance: TEDUGLUTIDE
     Dosage: 3.5 MILLILITER, 1X/DAY:QD
     Route: 058
     Dates: start: 20150218
  3. TEDUGLUTIDE [Suspect]
     Active Substance: TEDUGLUTIDE
     Dosage: 3.5 MILLILITER, 1X/DAY:QD
     Route: 058
     Dates: start: 20150218
  4. TEDUGLUTIDE [Suspect]
     Active Substance: TEDUGLUTIDE
     Indication: SHORT-BOWEL SYNDROME
     Dosage: 3.3 MILLIGRAM, 1X/DAY:QD
     Route: 058
     Dates: start: 20200817
  5. TEDUGLUTIDE [Suspect]
     Active Substance: TEDUGLUTIDE
     Indication: SHORT-BOWEL SYNDROME
     Dosage: 3.3 MILLIGRAM, 1X/DAY:QD
     Route: 058
     Dates: start: 20200817
  6. TEDUGLUTIDE [Suspect]
     Active Substance: TEDUGLUTIDE
     Dosage: 0.35 MILLILITER, 1X/DAY:QD
     Route: 058
     Dates: start: 20150218
  7. TEDUGLUTIDE [Suspect]
     Active Substance: TEDUGLUTIDE
     Dosage: 3.5 MILLILITER, 1X/DAY:QD
     Route: 058
     Dates: start: 20150218
  8. TEDUGLUTIDE [Suspect]
     Active Substance: TEDUGLUTIDE
     Dosage: 0.35 MILLILITER, 1X/DAY:QD
     Route: 058
     Dates: start: 20150218
  9. TEDUGLUTIDE [Suspect]
     Active Substance: TEDUGLUTIDE
     Dosage: 0.35 MILLILITER, 1X/DAY:QD
     Route: 058
     Dates: start: 20150218
  10. TEDUGLUTIDE [Suspect]
     Active Substance: TEDUGLUTIDE
     Indication: SHORT-BOWEL SYNDROME
     Dosage: 3.3 MILLIGRAM, 1X/DAY:QD
     Route: 058
     Dates: start: 20200817
  11. TEDUGLUTIDE [Suspect]
     Active Substance: TEDUGLUTIDE
     Dosage: 3.5 MILLILITER, 1X/DAY:QD
     Route: 058
     Dates: start: 20150218
  12. TEDUGLUTIDE [Suspect]
     Active Substance: TEDUGLUTIDE
     Dosage: 0.35 MILLILITER, 1X/DAY:QD
     Route: 058
     Dates: start: 20150218

REACTIONS (6)
  - Weight increased [Unknown]
  - Still^s disease [Recovered/Resolved]
  - Intentional product use issue [Unknown]
  - Inappropriate schedule of product administration [Unknown]
  - Product dose omission issue [Unknown]
  - Product availability issue [Unknown]

NARRATIVE: CASE EVENT DATE: 202009
